FAERS Safety Report 13769040 (Version 1)
Quarter: 2017Q3

REPORT INFORMATION
  Report Type: Spontaneous
  Country: AU (occurrence: AU)
  Receive Date: 20170719
  Receipt Date: 20170719
  Transmission Date: 20171127
  Serious: Yes (Death)
  Sender: FDA-Public Use
  Company Number: AU-GLAXOSMITHKLINE-AU2017GSK110406

PATIENT
  Age: 43 Year
  Sex: Female

DRUGS (6)
  1. NARAMIG [Suspect]
     Active Substance: NARATRIPTAN HYDROCHLORIDE
  2. STILNOX [Suspect]
     Active Substance: ZOLPIDEM TARTRATE
  3. ENDEP [Suspect]
     Active Substance: AMITRIPTYLINE HYDROCHLORIDE
  4. PANAMAX [Suspect]
     Active Substance: ACETAMINOPHEN
  5. ENDONE [Suspect]
     Active Substance: OXYCODONE HYDROCHLORIDE
  6. METHADONE [Suspect]
     Active Substance: METHADONE HYDROCHLORIDE

REACTIONS (2)
  - Toxicity to various agents [Fatal]
  - Overdose [Fatal]
